FAERS Safety Report 7225534-6 (Version None)
Quarter: 2011Q1

REPORT INFORMATION
  Report Type: 
  Country: None (occurrence: None)
  Receive Date: 20110113
  Receipt Date: 20110105
  Transmission Date: 20110831
  Serious: Yes (Hospitalization)
  Sender: FDA-Public Use
  Company Number: JP-ASTRAZENECA-2011SE01425

PATIENT
  Age: 633 Month
  Sex: Female

DRUGS (9)
  1. SERESTA [Suspect]
     Route: 048
     Dates: start: 20100408, end: 20100408
  2. PAROXETINE HCL [Suspect]
     Indication: PRODUCT USED FOR UNKNOWN INDICATION
     Route: 048
     Dates: start: 20100408, end: 20100408
  3. SERESTA [Suspect]
     Indication: PRODUCT USED FOR UNKNOWN INDICATION
     Route: 048
     Dates: end: 20100407
  4. SERESTA [Suspect]
     Route: 048
     Dates: start: 20100409
  5. LERCAN [Suspect]
     Indication: PRODUCT USED FOR UNKNOWN INDICATION
     Route: 048
  6. KENZEN [Suspect]
     Indication: PRODUCT USED FOR UNKNOWN INDICATION
     Route: 048
     Dates: end: 20100407
  7. KENZEN [Suspect]
     Route: 048
     Dates: start: 20100408, end: 20100408
  8. KENZEN [Suspect]
     Route: 048
     Dates: start: 20100409
  9. EQUANIL [Suspect]
     Indication: PRODUCT USED FOR UNKNOWN INDICATION
     Route: 048
     Dates: start: 20100408, end: 20100408

REACTIONS (4)
  - COMA [None]
  - POISONING DELIBERATE [None]
  - ALCOHOL POISONING [None]
  - LUNG DISORDER [None]
